FAERS Safety Report 10221020 (Version 2)
Quarter: 2014Q3

REPORT INFORMATION
  Report Type: Report from Study
  Country: US (occurrence: None)
  Receive Date: 20140604
  Receipt Date: 20140725
  Transmission Date: 20150326
  Serious: Yes (Hospitalization)
  Sender: FDA-Public Use
  Company Number: UTC-046995

PATIENT
  Age: 70 Year
  Sex: Female
  Weight: 48.6 kg

DRUGS (12)
  1. WARFARIN (WARFARIN) [Concomitant]
     Active Substance: WARFARIN
  2. POTASSIUM CHLORIDE (POTASSIUM CHLORIDE) [Concomitant]
     Active Substance: POTASSIUM CHLORIDE
  3. SILDENAFIL CITRATE (SILDENAFIL CITRATE) UNKNOWN [Suspect]
     Active Substance: SILDENAFIL CITRATE
     Indication: PULMONARY HYPERTENSION
     Dates: start: 20050826
  4. BOSENTAN (BOSENTAN) UNKNOWN [Suspect]
     Active Substance: BOSENTAN ANHYDROUS
     Indication: PULMONARY HYPERTENSION
     Dates: start: 20100710
  5. BUMETANIDE (BUMETANIDE) [Concomitant]
     Active Substance: BUMETANIDE
  6. DIGOXIN (DIGOXIN) [Concomitant]
     Active Substance: DIGOXIN
  7. TREPROSTINIL (INHALED) (TREPROSTINIL SODIUM (INHALED) INHALATION GAS [Suspect]
     Active Substance: TREPROSTINIL
     Indication: PULMONARY HYPERTENSION
     Route: 055
     Dates: start: 201004, end: 20140321
  8. METOPROLOL (METOPROLOL) [Concomitant]
     Active Substance: METOPROLOL
  9. OXYGEN (OXYGEN) [Concomitant]
     Active Substance: OXYGEN
  10. LOPERAMIDE (LOPERAMIDE) [Concomitant]
  11. LOSARTAN (LOSARTAN) [Concomitant]
     Active Substance: LOSARTAN
  12. GABAPENTIN (GABAPENTIN) [Concomitant]
     Active Substance: GABAPENTIN

REACTIONS (5)
  - Renal failure acute [None]
  - Hypercapnia [None]
  - Respiratory failure [None]
  - Pneumonia pneumococcal [None]
  - Pneumonia [None]

NARRATIVE: CASE EVENT DATE: 20140320
